FAERS Safety Report 7548304-8 (Version None)
Quarter: 2011Q2

REPORT INFORMATION
  Report Type: 
  Country: None (occurrence: None)
  Receive Date: 20110615
  Receipt Date: 20110613
  Transmission Date: 20111010
  Serious: Yes (Other)
  Sender: FDA-Public Use
  Company Number: US-PFIZER INC-2011129036

PATIENT
  Sex: Female
  Weight: 104 kg

DRUGS (22)
  1. VITAMIN B1 TAB [Concomitant]
     Dosage: UNK
  2. ALLOPURINOL [Concomitant]
     Dosage: 100 MG, DAILY
  3. VITAMIN E [Concomitant]
     Dosage: UNK
  4. FAMOTIDINE [Concomitant]
     Dosage: 20 MG, 2X/DAY
  5. NEURONTIN [Suspect]
     Indication: PAIN
     Dosage: 300 MG, DAILY
     Route: 048
     Dates: start: 20110112
  6. LOTREL [Concomitant]
     Dosage: 5/20 MG, 2X/DAY
  7. TOPROL-XL [Concomitant]
     Dosage: 1250 MG HALF IN MORNING AND HALF AT NIGHT
  8. ZINC SULFATE [Concomitant]
     Dosage: 220 MG, DAILY
  9. AMIODARONE [Concomitant]
     Dosage: 200 MG, DAILY
  10. VITAMIN B6 [Concomitant]
     Dosage: 100 MG, DAILY
  11. DETROL [Concomitant]
     Dosage: 4 MG, DAILY
  12. ACETYLSALICYLIC ACID [Concomitant]
     Dosage: 81 MG, DAILY
  13. ASCORBIC ACID [Concomitant]
     Dosage: 500 MG, DAILY
  14. RESTASIS [Concomitant]
     Dosage: UNK, 2X/DAY
  15. VITAMIN B-12 [Concomitant]
     Dosage: 1000 MG, DAILY
  16. FISH OIL [Concomitant]
     Dosage: 1200 MG, 2X/DAY
  17. CALCIUM [Concomitant]
     Dosage: 500 MG, DAILY
  18. PLAVIX [Concomitant]
     Dosage: 75 MG, DAILY
  19. CENTRUM [Concomitant]
     Dosage: UNK, DAILY
  20. ALPRAZOLAM [Concomitant]
     Dosage: 0.5 MG, DAILY
  21. NEPHRO-VITE [Concomitant]
     Dosage: 8 MG, DAILY
  22. CRESTOR [Concomitant]
     Dosage: 5 MG, DAILY

REACTIONS (2)
  - WEIGHT INCREASED [None]
  - OEDEMA PERIPHERAL [None]
